FAERS Safety Report 9263346 (Version 1)
Quarter: 2013Q2

REPORT INFORMATION
  Report Type: Spontaneous
  Country: US (occurrence: US)
  Receive Date: 20130430
  Receipt Date: 20130430
  Transmission Date: 20140414
  Serious: No
  Sender: FDA-Public Use
  Company Number: US-ABBOTT-12P-163-0975596-00

PATIENT
  Age: 33 Year
  Sex: Male
  Weight: 72.64 kg

DRUGS (2)
  1. CREON [Suspect]
     Indication: CYSTIC FIBROSIS
     Dosage: 20 CAPSULES DAILY
     Route: 048
  2. AZITHROMYCIN [Concomitant]
     Indication: CYSTIC FIBROSIS
     Dosage: UNKNOWN

REACTIONS (5)
  - Weight decreased [Unknown]
  - Abdominal discomfort [Unknown]
  - Product quality issue [Unknown]
  - Abdominal discomfort [Unknown]
  - Diarrhoea [Unknown]
